FAERS Safety Report 9018380 (Version 1)
Quarter: 2013Q1

REPORT INFORMATION
  Report Type: Spontaneous
  Country: US (occurrence: None)
  Receive Date: 20130111
  Receipt Date: 20130111
  Transmission Date: 20140127
  Serious: Yes (Hospitalization)
  Sender: FDA-Public Use
  Company Number: None

PATIENT
  Age: 93 Year
  Sex: Female
  Weight: 57.6 kg

DRUGS (12)
  1. PLAVIX [Suspect]
     Indication: MYOCARDIAL INFARCTION
     Route: 048
  2. ASA [Suspect]
     Route: 048
  3. ATORVASTATIN [Concomitant]
  4. CLORAZEPATE [Concomitant]
  5. FERROUS SULFATE [Concomitant]
  6. MEMANTINE [Concomitant]
  7. DONEPEZIL [Concomitant]
  8. SERTRALINE [Concomitant]
  9. LEVOTHYROXINE [Concomitant]
  10. SPIRONOLACTONE [Concomitant]
  11. TOPROL XL [Concomitant]
  12. AMLODIPINE [Concomitant]

REACTIONS (2)
  - Gastrointestinal haemorrhage [None]
  - Gastric antral vascular ectasia [None]
